FAERS Safety Report 15333645 (Version 1)
Quarter: 2018Q3

REPORT INFORMATION
  Report Type: Spontaneous
  Country: GB (occurrence: GB)
  Receive Date: 20180830
  Receipt Date: 20180830
  Transmission Date: 20181010
  Serious: Yes (Hospitalization, Other)
  Sender: FDA-Public Use
  Company Number: PHHY2014GB185267

PATIENT
  Sex: Female

DRUGS (15)
  1. SOLIRIS [Suspect]
     Active Substance: ECULIZUMAB
     Dosage: 900 MG, Q2W
     Route: 065
  2. CITRAZINE [Concomitant]
     Indication: PRODUCT USED FOR UNKNOWN INDICATION
     Dosage: UNK
     Route: 065
  3. SOLIRIS [Suspect]
     Active Substance: ECULIZUMAB
     Dosage: 900 MG, Q2W
     Route: 065
  4. EXJADE [Suspect]
     Active Substance: DEFERASIROX
     Indication: PRODUCT USED FOR UNKNOWN INDICATION
     Dosage: UNK
     Route: 065
  5. SOLIRIS [Suspect]
     Active Substance: ECULIZUMAB
     Dosage: 900 MG, Q2W
     Route: 065
     Dates: start: 20120627
  6. LEVOTHYROXINE. [Concomitant]
     Active Substance: LEVOTHYROXINE
     Indication: PRODUCT USED FOR UNKNOWN INDICATION
     Dosage: UNK
     Route: 065
  7. TEGRETOL [Concomitant]
     Active Substance: CARBAMAZEPINE
     Indication: PRODUCT USED FOR UNKNOWN INDICATION
     Dosage: UNK
     Route: 065
  8. SOLIRIS [Suspect]
     Active Substance: ECULIZUMAB
     Dosage: 900 MG, Q2W
     Route: 065
  9. SOLIRIS [Suspect]
     Active Substance: ECULIZUMAB
     Dosage: 900 MG, Q2W
     Route: 065
  10. SOLIRIS [Suspect]
     Active Substance: ECULIZUMAB
     Dosage: 1 OT, QW
     Route: 065
     Dates: start: 20080822
  11. SOLIRIS [Suspect]
     Active Substance: ECULIZUMAB
     Dosage: 900 MG, Q2W
     Route: 065
  12. SOLIRIS [Suspect]
     Active Substance: ECULIZUMAB
     Dosage: 900 MG, Q2W
     Route: 065
  13. SOLIRIS [Suspect]
     Active Substance: ECULIZUMAB
     Dosage: 900 MG, Q2W
     Route: 065
  14. SOLIRIS [Suspect]
     Active Substance: ECULIZUMAB
     Indication: PAROXYSMAL NOCTURNAL HAEMOGLOBINURIA
     Dosage: 900 MG, Q2W
     Route: 065
     Dates: start: 20120502
  15. SOLIRIS [Suspect]
     Active Substance: ECULIZUMAB
     Dosage: 900 MG, Q2W
     Route: 065

REACTIONS (39)
  - Asthenia [Unknown]
  - Dyspnoea exertional [Unknown]
  - Oropharyngeal pain [Recovered/Resolved]
  - Diarrhoea [Unknown]
  - Dizziness [Unknown]
  - Tinnitus [Unknown]
  - Ear pain [Unknown]
  - Back pain [Unknown]
  - Pruritus [Unknown]
  - Dysphagia [Unknown]
  - Viral infection [Recovering/Resolving]
  - Ligament sprain [Not Recovered/Not Resolved]
  - Pharyngitis [Recovered/Resolved]
  - Tension headache [Not Recovered/Not Resolved]
  - Musculoskeletal stiffness [Not Recovered/Not Resolved]
  - Anaemia [Unknown]
  - Lethargy [Not Recovered/Not Resolved]
  - Hypotension [Unknown]
  - Renal pain [Not Recovered/Not Resolved]
  - Contusion [Unknown]
  - Infection [Unknown]
  - Fatigue [Not Recovered/Not Resolved]
  - Malaise [Not Recovered/Not Resolved]
  - Feeling cold [Unknown]
  - Fall [Not Recovered/Not Resolved]
  - Arthralgia [Not Recovered/Not Resolved]
  - Haemolysis [Unknown]
  - Urinary tract infection [Not Recovered/Not Resolved]
  - Joint injury [Not Recovered/Not Resolved]
  - Pain in extremity [Unknown]
  - Abdominal pain [Unknown]
  - Cough [Not Recovered/Not Resolved]
  - Poor venous access [Recovered/Resolved]
  - Abdominal pain upper [Not Recovered/Not Resolved]
  - Vein rupture [Recovered/Resolved]
  - Lymphadenopathy [Recovered/Resolved]
  - Kidney infection [Not Recovered/Not Resolved]
  - Lower respiratory tract infection [Recovered/Resolved]
  - Deafness [Unknown]

NARRATIVE: CASE EVENT DATE: 20131201
